FAERS Safety Report 9838800 (Version 2)
Quarter: 2014Q3

REPORT INFORMATION
  Report Type: Spontaneous
  Country: US (occurrence: US)
  Receive Date: 20140123
  Receipt Date: 20140818
  Transmission Date: 20150326
  Serious: Yes (Hospitalization, Other)
  Sender: FDA-Public Use
  Company Number: US-009507513-1401USA010031

PATIENT
  Sex: Female
  Weight: 101.5 kg

DRUGS (2)
  1. GEODON [Concomitant]
     Active Substance: ZIPRASIDONE HYDROCHLORIDE\ZIPRASIDONE MESYLATE
     Dosage: 40 MG, QD
     Dates: start: 201111
  2. NUVARING [Suspect]
     Active Substance: ETHINYL ESTRADIOL\ETONOGESTREL
     Indication: CONTRACEPTION
     Dosage: 0.015MG-0.120MG INSERT X 3 WKS/REMOVE X 1 WK
     Route: 067
     Dates: start: 201202, end: 20120309

REACTIONS (3)
  - Hypoaesthesia [Unknown]
  - Pulmonary embolism [Unknown]
  - Menorrhagia [Unknown]

NARRATIVE: CASE EVENT DATE: 20120227
